FAERS Safety Report 7105257-4 (Version None)
Quarter: 2010Q4

REPORT INFORMATION
  Report Type: 
  Country: None (occurrence: None)
  Receive Date: 20101108
  Receipt Date: 20101025
  Transmission Date: 20110411
  Serious: Yes (Other)
  Sender: FDA-Public Use
  Company Number: ZYD-10-AE-258

PATIENT
  Age: 49 Year
  Sex: Female

DRUGS (14)
  1. METFORMIN 500MG TABLETS (ZYDUS) [Suspect]
     Indication: TYPE 2 DIABETES MELLITUS
     Dosage: 500MG - BID - ORAL
     Route: 048
     Dates: end: 20100601
  2. AMLODIPINE [Concomitant]
  3. LISINOPRIL [Concomitant]
  4. SEROQUEL [Concomitant]
  5. LEVOTHYROXINE SODIUM [Concomitant]
  6. FLUOXETINE [Concomitant]
  7. ACTOS [Concomitant]
  8. DIAZEPAM [Concomitant]
  9. TOPIRAMATE [Concomitant]
  10. NEXIUM [Concomitant]
  11. RANITIDINE [Concomitant]
  12. HYDROXYZINE [Concomitant]
  13. TIMOLOL [Concomitant]
  14. SINGULAIR [Concomitant]

REACTIONS (2)
  - RENAL CYST [None]
  - RENAL FAILURE [None]
